FAERS Safety Report 15506205 (Version 1)
Quarter: 2018Q4

REPORT INFORMATION
  Report Type: Spontaneous
  Country: US (occurrence: US)
  Receive Date: 20181016
  Receipt Date: 20181016
  Transmission Date: 20190205
  Serious: No
  Sender: FDA-Public Use
  Company Number: US-ASTRAZENECA-2018SF20312

PATIENT
  Sex: Female

DRUGS (4)
  1. SYMBICORT [Suspect]
     Active Substance: BUDESONIDE\FORMOTEROL FUMARATE DIHYDRATE
     Dosage: TOOK SYMBICORT TWICE ON THURSDAY, TWICE ON FRIDAY, TWICE ON SATURDAY, TWICE ON SUNDAY, AND ONCE T...
     Route: 055
  2. TAGAMET [Concomitant]
     Active Substance: CIMETIDINE
  3. ALLEGRA [Concomitant]
     Active Substance: FEXOFENADINE HYDROCHLORIDE
  4. PROAIR HFA [Concomitant]
     Active Substance: ALBUTEROL SULFATE

REACTIONS (4)
  - Feeling abnormal [Unknown]
  - Generalised erythema [Unknown]
  - Hypersensitivity [Unknown]
  - Body temperature abnormal [Unknown]
